FAERS Safety Report 7007579-4 (Version None)
Quarter: 2010Q3

REPORT INFORMATION
  Report Type: 
  Country: None (occurrence: None)
  Receive Date: 20100922
  Receipt Date: 20100818
  Transmission Date: 20110219
  Serious: No
  Sender: FDA-Public Use
  Company Number: US-BAYER-201020165BCC

PATIENT
  Age: 84 Year
  Sex: Male
  Weight: 64 kg

DRUGS (7)
  1. ALEVE [Suspect]
     Indication: ARTHRALGIA
     Dosage: UNIT DOSE: 220 MG
     Route: 048
     Dates: start: 20100815
  2. ALEVE (CAPLET) [Suspect]
     Indication: ARTHRALGIA
     Dosage: UNIT DOSE: 220 MG
     Route: 048
     Dates: start: 20100813, end: 20100814
  3. ALEVE (CAPLET) [Suspect]
     Dosage: UNIT DOSE: 220 MG
     Route: 048
     Dates: start: 20100817
  4. ASPIRIN [Concomitant]
     Route: 065
  5. AVILA VITAMINS [Concomitant]
     Route: 065
  6. CALCIUM [Concomitant]
     Route: 065
  7. FISH OIL [Concomitant]
     Route: 065

REACTIONS (1)
  - CONSTIPATION [None]
